FAERS Safety Report 16828618 (Version 1)
Quarter: 2019Q3

REPORT INFORMATION
  Report Type: Spontaneous
  Country: US (occurrence: US)
  Receive Date: 20190919
  Receipt Date: 20190919
  Transmission Date: 20191005
  Serious: No
  Sender: FDA-Public Use
  Company Number: US-PFIZER INC-2019405531

PATIENT
  Age: 34 Year
  Sex: Female
  Weight: 68.27 kg

DRUGS (3)
  1. VENLAFAXINE HCL [Suspect]
     Active Substance: VENLAFAXINE HYDROCHLORIDE
     Dosage: UNK
  2. DULOXETINE. [Suspect]
     Active Substance: DULOXETINE
     Dosage: UNK
  3. LAMOTRIGINE. [Suspect]
     Active Substance: LAMOTRIGINE
     Dosage: UNK

REACTIONS (2)
  - Palpitations [Unknown]
  - Drug hypersensitivity [Unknown]
